FAERS Safety Report 12517276 (Version 2)
Quarter: 2016Q3

REPORT INFORMATION
  Report Type: Spontaneous
  Country: BR (occurrence: BR)
  Receive Date: 20160630
  Receipt Date: 20160712
  Transmission Date: 20161109
  Serious: No
  Sender: FDA-Public Use
  Company Number: BR-PFIZER INC-2014033997

PATIENT
  Age: 57 Year
  Sex: Male

DRUGS (5)
  1. FRONTAL [Suspect]
     Active Substance: ALPRAZOLAM
     Indication: INSOMNIA
     Dosage: 1 TABLET OF 0.5 MG, DAILY
     Route: 048
     Dates: start: 2009
  2. LIPIDIL [Concomitant]
     Active Substance: FENOFIBRATE
     Dosage: UNK
  3. GALVUS MET [Concomitant]
     Active Substance: METFORMIN HYDROCHLORIDE\VILDAGLIPTIN
     Dosage: UNK
  4. FRONTAL [Suspect]
     Active Substance: ALPRAZOLAM
     Dosage: 1 MG, DAILY
  5. FRONTAL [Suspect]
     Active Substance: ALPRAZOLAM
     Dosage: 2 MG TABLET AT NIGHT
     Route: 048
     Dates: start: 201201

REACTIONS (2)
  - Insomnia [Not Recovered/Not Resolved]
  - Drug ineffective [Recovered/Resolved]
